FAERS Safety Report 8524856-6 (Version None)
Quarter: 2012Q3

REPORT INFORMATION
  Report Type: 
  Country: None (occurrence: None)
  Receive Date: 20120720
  Receipt Date: 20120717
  Transmission Date: 20120928
  Serious: Yes (Hospitalization)
  Sender: FDA-Public Use
  Company Number: PHHY2012PL061187

PATIENT
  Sex: Male

DRUGS (3)
  1. FENTANYL-100 [Suspect]
     Indication: PROSTATE CANCER
     Dosage: 50 UG, DAILY
     Route: 062
     Dates: start: 20120503, end: 20120521
  2. ONDANSETRON [Suspect]
     Indication: PROSTATE CANCER
     Dosage: 24 MG, DAILY
     Route: 048
     Dates: start: 20120503, end: 20120521
  3. ESCITALOPRAM OXALATE [Suspect]
     Indication: PROSTATE CANCER
     Dosage: 10 MG, DAILY
     Route: 048
     Dates: start: 20120503, end: 20120521

REACTIONS (1)
  - SEROTONIN SYNDROME [None]
